FAERS Safety Report 9522979 (Version 1)
Quarter: 2013Q3

REPORT INFORMATION
  Report Type: Spontaneous
  Country: DE (occurrence: None)
  Receive Date: 20130911
  Receipt Date: 20130911
  Transmission Date: 20140515
  Serious: No
  Sender: FDA-Public Use
  Company Number: AEDEU201300061

PATIENT
  Age: 47 Year
  Sex: Female

DRUGS (4)
  1. GAMUNEX [Suspect]
     Indication: IMMUNODEFICIENCY COMMON VARIABLE
     Route: 042
     Dates: start: 20121116
  2. GAMUNEX [Suspect]
     Indication: SELECTIVE IGA IMMUNODEFICIENCY
     Route: 042
     Dates: start: 20121116
  3. L-THYROXIN [Concomitant]
  4. KLIMADYNON /01456805/ [Concomitant]

REACTIONS (2)
  - Urticaria [None]
  - Headache [None]
